FAERS Safety Report 8168273 (Version 4)
Quarter: 2014Q2

REPORT INFORMATION
  Report Type: Spontaneous
  Country: US (occurrence: US)
  Receive Date: 20111004
  Receipt Date: 20140429
  Transmission Date: 20141212
  Serious: Yes (Other)
  Sender: FDA-Public Use
  Company Number: US-BAYER-2011-091186

PATIENT
  Age: 20 Year
  Sex: Female
  Weight: 104.31 kg

DRUGS (18)
  1. YAZ [Suspect]
     Indication: CONTRACEPTION
     Dosage: UNK
     Route: 048
     Dates: start: 2008, end: 2009
  2. YAZ [Suspect]
     Indication: CONTRACEPTION
     Dosage: UNK
     Route: 048
     Dates: start: 200901
  3. ALBUTEROL [Concomitant]
     Indication: ASTHMA
  4. ADVAIR [Concomitant]
     Indication: ASTHMA
  5. ATIVAN [Concomitant]
     Indication: ANXIETY
  6. VICODIN [Concomitant]
     Indication: PAIN
  7. HYDROXYZINE [Concomitant]
     Indication: NAUSEA
  8. HYDROXYZINE [Concomitant]
     Indication: ANXIETY
  9. IMIPRAMINE [Concomitant]
     Indication: BLADDER SPASM
  10. ASPIRIN [Concomitant]
     Indication: PAIN
  11. IBUPROFEN [Concomitant]
     Indication: PAIN
  12. TYLENOL [PARACETAMOL] [Concomitant]
     Indication: PAIN
  13. DEPO PROVERA [Concomitant]
  14. EFFEXOR [Concomitant]
     Indication: DEPRESSION
  15. EFFEXOR [Concomitant]
     Indication: ASTHMA
  16. NASONEX [Concomitant]
  17. ROCEPHIN [Concomitant]
  18. PROMETHAZINE [Concomitant]
     Indication: NAUSEA

REACTIONS (13)
  - Gallbladder disorder [None]
  - Cholecystitis [None]
  - Cystitis interstitial [None]
  - Weight increased [None]
  - Inguinal hernia [None]
  - Hernia [None]
  - Libido decreased [None]
  - Injury [None]
  - Pain [None]
  - General physical health deterioration [None]
  - Anxiety [Not Recovered/Not Resolved]
  - Anhedonia [None]
  - Emotional distress [None]
